FAERS Safety Report 6998137-6 (Version None)
Quarter: 2010Q3

REPORT INFORMATION
  Report Type: 
  Country: None (occurrence: None)
  Receive Date: 20100920
  Receipt Date: 20090917
  Transmission Date: 20110219
  Serious: Yes (Other)
  Sender: FDA-Public Use
  Company Number: US-ASTRAZENECA-2007UW14907

PATIENT
  Age: 11 Year
  Sex: Female
  Weight: 47.6 kg

DRUGS (8)
  1. SEROQUEL [Suspect]
     Indication: SLEEP DISORDER
     Route: 048
     Dates: start: 19980101, end: 20040101
  2. SEROQUEL [Suspect]
     Indication: BIPOLAR DISORDER
     Route: 048
     Dates: start: 19980101, end: 20040101
  3. SEROQUEL [Suspect]
     Dosage: 100-200 MG
     Route: 048
     Dates: start: 20021024
  4. SEROQUEL [Suspect]
     Dosage: 100-200 MG
     Route: 048
     Dates: start: 20021024
  5. RISPERDAL [Concomitant]
     Indication: BIPOLAR DISORDER
  6. ZYPREXA [Concomitant]
     Indication: BIPOLAR DISORDER
  7. ABILIFY [Concomitant]
  8. KLONOPIN [Concomitant]

REACTIONS (3)
  - CHOLELITHIASIS [None]
  - PANCREATITIS [None]
  - PANCREATITIS CHRONIC [None]
